FAERS Safety Report 9804315 (Version 3)
Quarter: 2014Q3

REPORT INFORMATION
  Report Type: Spontaneous
  Country: US (occurrence: US)
  Receive Date: 20140108
  Receipt Date: 20140801
  Transmission Date: 20150326
  Serious: No
  Sender: FDA-Public Use
  Company Number: US-BRISTOL-MYERS SQUIBB COMPANY-19625284

PATIENT
  Age: 63 Year
  Sex: Female
  Weight: 102 kg

DRUGS (13)
  1. LISINOPRIL. [Concomitant]
     Active Substance: LISINOPRIL
     Dosage: TABS
     Route: 048
  2. MULTIVITAMIN [Concomitant]
     Active Substance: VITAMINS
     Dosage: 1 DF = 1 TABS
     Route: 048
  3. SPIRONOLACTONE. [Concomitant]
     Active Substance: SPIRONOLACTONE
     Dosage: TABS
     Route: 048
  4. FUROSEMIDE. [Concomitant]
     Active Substance: FUROSEMIDE
     Dosage: 1 TABS
     Route: 048
  5. ZETIA [Concomitant]
     Active Substance: EZETIMIBE
     Dosage: TABS
     Route: 048
  6. METFORMIN HCL [Concomitant]
     Active Substance: METFORMIN HYDROCHLORIDE
     Dosage: SUSTAINED RELEASE 24 HR TABS
     Route: 048
  7. SPRYCEL [Suspect]
     Active Substance: DASATINIB
     Dosage: FORMULATION: TAB?2 PER WEEK
     Route: 048
  8. TRICOR [Concomitant]
     Active Substance: FENOFIBRATE
     Route: 048
  9. GLIMEPIRIDE. [Concomitant]
     Active Substance: GLIMEPIRIDE
     Dosage: TAKE HALF 1 TABS,RESUMED EARLY DECEMBER
     Route: 048
  10. SYNTHROID [Concomitant]
     Active Substance: LEVOTHYROXINE SODIUM
     Route: 048
  11. ATIVAN [Concomitant]
     Active Substance: LORAZEPAM
     Indication: NAUSEA
     Dosage: 1 TABS
     Route: 048
  12. ATIVAN [Concomitant]
     Active Substance: LORAZEPAM
     Indication: ANXIETY
     Dosage: 1 TABS
     Route: 048
  13. PROCHLORPERAZINE. [Concomitant]
     Active Substance: PROCHLORPERAZINE
     Indication: NAUSEA
     Dosage: TABS
     Route: 048

REACTIONS (4)
  - Malaise [Unknown]
  - Fluid retention [Unknown]
  - Diverticulitis [Recovering/Resolving]
  - Fatigue [Unknown]

NARRATIVE: CASE EVENT DATE: 20131015
